FAERS Safety Report 5391760-4 (Version None)
Quarter: 2007Q3

REPORT INFORMATION
  Report Type: 
  Country: None (occurrence: None)
  Receive Date: 20070717
  Receipt Date: 20070702
  Transmission Date: 20080115
  Serious: Yes (Other)
  Sender: FDA-Public Use
  Company Number: CIP07001290

PATIENT
  Age: 79 Year
  Sex: Female

DRUGS (4)
  1. DIDRONEL [Suspect]
     Indication: OSTEOPOROSIS
     Dosage: 200 MG, CYCLIC 14 DAYS ON 3 MONTHS OFF, ORAL
     Route: 048
     Dates: start: 20030501, end: 20061101
  2. FERROMIA (FERROUS CITRATE) [Concomitant]
  3. PRAVASTATIN SODIUM [Concomitant]
  4. KELNAC (PLAUNOTOL) [Concomitant]

REACTIONS (7)
  - DENTAL FISTULA [None]
  - OSTEOMYELITIS [None]
  - POST PROCEDURAL COMPLICATION [None]
  - PRIMARY SEQUESTRUM [None]
  - PURULENT DISCHARGE [None]
  - SWELLING FACE [None]
  - TOOTH EXTRACTION [None]
